FAERS Safety Report 6344600-0 (Version None)
Quarter: 2009Q3

REPORT INFORMATION
  Report Type: 
  Country: None (occurrence: None)
  Receive Date: 20090908
  Receipt Date: 20090901
  Transmission Date: 20100115
  Serious: Yes (Disabling, Other)
  Sender: FDA-Public Use
  Company Number: GB-ABBOTT-09P-167-0583725-00

PATIENT
  Sex: Female
  Weight: 69 kg

DRUGS (1)
  1. HUMIRA [Suspect]
     Indication: CROHN'S DISEASE
     Dates: start: 20080901, end: 20090701

REACTIONS (1)
  - DYSHIDROSIS [None]
